FAERS Safety Report 8862374 (Version 1)
Quarter: 2012Q4

REPORT INFORMATION
  Report Type: 
  Country: US (occurrence: US)
  Receive Date: 20121026
  Receipt Date: 20121026
  Transmission Date: 20130627
  Serious: Yes (Other)
  Sender: FDA-Public Use
  Company Number: PHEH2012US020782

PATIENT
  Sex: Female

DRUGS (5)
  1. DIOVAN HCT [Suspect]
     Dosage: 1 DF, per day
  2. JANUMET [Concomitant]
  3. GLIMEPIRIDE [Concomitant]
     Dosage: 1 DF, per day
  4. ASPIRIN ^BAYER^ [Concomitant]
  5. CEPHALEXIN [Concomitant]
     Dosage: 3 DF, per day

REACTIONS (4)
  - Diabetes mellitus [Unknown]
  - Cataract [Unknown]
  - Fall [Unknown]
  - Haematoma [Unknown]
